FAERS Safety Report 6996643-1 (Version None)
Quarter: 2010Q3

REPORT INFORMATION
  Report Type: 
  Country: None (occurrence: None)
  Receive Date: 20100918
  Receipt Date: 20090625
  Transmission Date: 20110219
  Serious: No
  Sender: FDA-Public Use
  Company Number: US-WYE-H09351209

PATIENT
  Age: 50 Year
  Sex: Female

DRUGS (2)
  1. PREMPRO [Suspect]
     Dosage: 0.625/5MG
     Route: 048
     Dates: start: 20030101
  2. PREMPRO [Suspect]
     Dosage: DOSE WAS LOWERED ON 18-JUN-2009

REACTIONS (2)
  - DRUG WITHDRAWAL SYNDROME [None]
  - HOT FLUSH [None]
